FAERS Safety Report 19657696 (Version 1)
Quarter: 2021Q3

REPORT INFORMATION
  Report Type: Spontaneous
  Country: CL (occurrence: CL)
  Receive Date: 20210804
  Receipt Date: 20210804
  Transmission Date: 20211014
  Serious: Yes (Other)
  Sender: FDA-Public Use
  Company Number: NVSC2021CL175047

PATIENT

DRUGS (4)
  1. CALCIUM FOLINATE [Suspect]
     Active Substance: LEUCOVORIN CALCIUM
     Indication: GASTRIC CANCER
     Dosage: 200 MG/M2, CYCLIC (ON DAY1)
     Route: 042
  2. FLUOROURACIL. [Suspect]
     Active Substance: FLUOROURACIL
     Indication: GASTRIC CANCER
     Dosage: 2600 MG/M2, CYCLIC IN 24 HOUR INFUSION (ONDAY 1)
     Route: 042
  3. OXALIPLATIN. [Suspect]
     Active Substance: OXALIPLATIN
     Indication: GASTRIC CANCER
     Dosage: 85 MG/M2, CYCLIC (ON DAY1)
     Route: 042
  4. DOCETAXEL. [Suspect]
     Active Substance: DOCETAXEL
     Indication: GASTRIC CANCER
     Dosage: 50 MG/M2, CYCLIC(ON DAY1)
     Route: 042

REACTIONS (2)
  - Product use in unapproved indication [Unknown]
  - Pulmonary sepsis [Unknown]
